FAERS Safety Report 9455959 (Version 4)
Quarter: 2019Q3

REPORT INFORMATION
  Report Type: Report from Study
  Country: IT (occurrence: IT)
  Receive Date: 20130813
  Receipt Date: 20190915
  Transmission Date: 20191005
  Serious: Yes (Death, Other)
  Sender: FDA-Public Use
  Company Number: IT-CELGENEUS-083-21880-13012572

PATIENT

DRUGS (5)
  1. DEXAMETHASONE. [Concomitant]
     Active Substance: DEXAMETHASONE
     Indication: PLASMA CELL MYELOMA
     Dosage: 40 MILLIGRAM
     Route: 065
  2. PREDNISONE. [Concomitant]
     Active Substance: PREDNISONE
     Indication: PLASMA CELL MYELOMA
     Route: 065
  3. REVLIMID [Suspect]
     Active Substance: LENALIDOMIDE
     Indication: PLASMA CELL MYELOMA
     Dosage: 25 MILLIGRAM
     Route: 048
  4. CYCLOPHOSPHAMIDE. [Concomitant]
     Active Substance: CYCLOPHOSPHAMIDE
     Indication: PLASMA CELL MYELOMA
     Dosage: 300 MILLIGRAM/SQ. METER
     Route: 065
  5. REVLIMID [Suspect]
     Active Substance: LENALIDOMIDE
     Dosage: 10 MILLIGRAM
     Route: 048

REACTIONS (16)
  - Anaemia [Unknown]
  - Neutropenia [Unknown]
  - Angiopathy [Unknown]
  - Infection [Fatal]
  - Toxicity to various agents [Unknown]
  - Cardiotoxicity [Fatal]
  - Gastrointestinal disorder [Unknown]
  - Plasma cell myeloma recurrent [Unknown]
  - Skin toxicity [Unknown]
  - Hepatotoxicity [Unknown]
  - Thrombosis [Unknown]
  - Neuropathy peripheral [Unknown]
  - Plasma cell myeloma [Unknown]
  - Death [Fatal]
  - Thrombocytopenia [Unknown]
  - Neurotoxicity [Unknown]
